FAERS Safety Report 6902544-7 (Version None)
Quarter: 2010Q3

REPORT INFORMATION
  Report Type: 
  Country: None (occurrence: None)
  Receive Date: 20100730
  Receipt Date: 20100715
  Transmission Date: 20110219
  Serious: Yes (Death, Life-Threatening, Hospitalization, Other)
  Sender: FDA-Public Use
  Company Number: 2010AC000478

PATIENT
  Age: 76 Year
  Sex: Female

DRUGS (23)
  1. DIGOXIN [Suspect]
     Dosage: 0.125 MG;QD;PO
     Route: 048
     Dates: end: 20081001
  2. DIGOXIN [Suspect]
     Dosage: 01.25 MG;QD;PO
     Route: 048
     Dates: start: 20081205, end: 20081212
  3. DIGOXIN [Suspect]
     Dosage: 0.250 MG;QD;PO
     Route: 048
     Dates: start: 20081213, end: 20081213
  4. DIGOXIN [Suspect]
     Dosage: 0125 MG;QOD;PO
     Route: 048
     Dates: start: 20081025, end: 20081123
  5. COUMADIN [Concomitant]
  6. SPIRIVA [Concomitant]
  7. DARVOCET [Concomitant]
  8. AMBIEN [Concomitant]
  9. LIPITOR [Concomitant]
  10. ASPIRIN [Concomitant]
  11. REGLAN [Concomitant]
  12. BUMEX [Concomitant]
  13. FLUOXETINE [Concomitant]
  14. BISOPROLOL [Concomitant]
  15. LASIX [Concomitant]
  16. SPIRONOLACTONE [Concomitant]
  17. VITAMIN D [Concomitant]
  18. KEPPRA [Concomitant]
  19. OMEPRAZOLE [Concomitant]
  20. PLAVIX [Concomitant]
  21. RAMIPRIL [Concomitant]
  22. HEPARIN [Concomitant]
  23. OXYGEN [Concomitant]

REACTIONS (69)
  - ABDOMINAL PAIN [None]
  - ANAEMIA OF CHRONIC DISEASE [None]
  - ANGIOPATHY [None]
  - ANXIETY [None]
  - ARTERIOSCLEROSIS [None]
  - ASCITES [None]
  - ATRIAL FIBRILLATION [None]
  - BLADDER CANCER [None]
  - BLOOD GLUCOSE DECREASED [None]
  - BLOOD POTASSIUM DECREASED [None]
  - BRADYCARDIA [None]
  - BRAIN NATRIURETIC PEPTIDE INCREASED [None]
  - BUNDLE BRANCH BLOCK RIGHT [None]
  - CARDIAC FAILURE CONGESTIVE [None]
  - CARDIOACTIVE DRUG LEVEL BELOW THERAPEUTIC [None]
  - CARDIOMEGALY [None]
  - CAROTID ARTERY STENOSIS [None]
  - CEREBELLAR ATROPHY [None]
  - CEREBRAL ATROPHY [None]
  - CEREBROVASCULAR ACCIDENT [None]
  - CHOLECYSTITIS ACUTE [None]
  - CHRONIC OBSTRUCTIVE PULMONARY DISEASE [None]
  - COAGULOPATHY [None]
  - CORONARY ARTERY DISEASE [None]
  - DEPENDENT RUBOR [None]
  - DEPRESSION [None]
  - DILATATION VENTRICULAR [None]
  - DIZZINESS [None]
  - EFFUSION [None]
  - ELECTROCARDIOGRAM ST-T CHANGE [None]
  - ENCEPHALOPATHY [None]
  - FATIGUE [None]
  - FIBROMYALGIA [None]
  - GASTRITIS [None]
  - GASTRITIS EROSIVE [None]
  - HAEMATOCRIT DECREASED [None]
  - HAEMOGLOBIN DECREASED [None]
  - HEADACHE [None]
  - HEMIPARESIS [None]
  - HYPERTENSIVE CRISIS [None]
  - HYPOTENSION [None]
  - HYPOXIA [None]
  - INITIAL INSOMNIA [None]
  - INJURY [None]
  - ISCHAEMIC CARDIOMYOPATHY [None]
  - LETHARGY [None]
  - MENTAL STATUS CHANGES [None]
  - MICROANGIOPATHY [None]
  - MUSCULAR WEAKNESS [None]
  - MYOCARDIAL INFARCTION [None]
  - MYOCARDIAL ISCHAEMIA [None]
  - ONYCHOMYCOSIS [None]
  - PAIN [None]
  - PAIN IN EXTREMITY [None]
  - PARTIAL SEIZURES [None]
  - PARTNER STRESS [None]
  - PERICARDIAL EFFUSION [None]
  - PLEURAL EFFUSION [None]
  - RED BLOOD CELL COUNT DECREASED [None]
  - RENAL FAILURE CHRONIC [None]
  - RETINAL ANEURYSM [None]
  - RIGHT ATRIAL DILATATION [None]
  - SICK SINUS SYNDROME [None]
  - STRESS [None]
  - SYNCOPE [None]
  - THERAPEUTIC AGENT TOXICITY [None]
  - TRICUSPID VALVE INCOMPETENCE [None]
  - UNRESPONSIVE TO STIMULI [None]
  - VENOUS INSUFFICIENCY [None]
